FAERS Safety Report 5255798-X (Version None)
Quarter: 2007Q1

REPORT INFORMATION
  Report Type: 
  Country: None (occurrence: None)
  Receive Date: 20070301
  Receipt Date: 20070222
  Transmission Date: 20070707
  Serious: Yes (Death)
  Sender: FDA-Public Use
  Company Number: 236761

PATIENT
  Age: 37 Year
  Sex: Female

DRUGS (3)
  1. BEVACIZUMAB OR PLACEBO(BEVACIZUMAB) PWDR + SOLVENT, INFUSION SOLN, 100 [Suspect]
     Indication: BREAST CANCER METASTATIC
     Dosage: 15 MG, Q3W, INTRAVENOUS
     Route: 042
     Dates: start: 20070115, end: 20070205
  2. CAPECITABINE (CAPECITABINE) [Concomitant]
  3. AQUEOUS CREAM (DERMATOLOGIC AGENT NOS) [Concomitant]

REACTIONS (14)
  - ANOREXIA [None]
  - CARDIAC ARREST [None]
  - DYSPNOEA [None]
  - EMBOLISM [None]
  - FATIGUE [None]
  - HAEMORRHAGE INTRACRANIAL [None]
  - HEADACHE [None]
  - LOSS OF CONSCIOUSNESS [None]
  - MALIGNANT NEOPLASM PROGRESSION [None]
  - NO THERAPEUTIC RESPONSE [None]
  - RESPIRATORY ARREST [None]
  - SEPSIS [None]
  - SUDDEN DEATH [None]
  - WHITE BLOOD CELL COUNT INCREASED [None]
